FAERS Safety Report 10155741 (Version 2)
Quarter: 2014Q2

REPORT INFORMATION
  Report Type: Spontaneous
  Country: US (occurrence: US)
  Receive Date: 20140506
  Receipt Date: 20140610
  Transmission Date: 20141212
  Serious: Yes (Disabling, Other)
  Sender: FDA-Public Use
  Company Number: US-MERCK-1405USA002239

PATIENT
  Age: 60 Year
  Sex: Female
  Weight: 73.5 kg

DRUGS (14)
  1. JANUVIA [Suspect]
     Dosage: UNK
     Route: 048
     Dates: start: 201305
  2. METFORMIN [Concomitant]
  3. GLUCOTROL [Concomitant]
     Dosage: 10 MG ORAL TABLET, 1 TABLET DAILY
     Route: 048
     Dates: start: 201401
  4. GLUCOTROL [Concomitant]
     Dosage: 1 DF, BID
  5. HYZAAR [Concomitant]
  6. ASPIRIN [Concomitant]
  7. VITAMINS (UNSPECIFIED) [Concomitant]
  8. LIPITOR [Concomitant]
     Dosage: 1 DF, QD
     Route: 048
  9. PATADAY [Concomitant]
     Dosage: INSTILL 1 DROP INTO AFFECTED EYE(S) ONCE DAILY AS DIRECTED
     Route: 047
  10. CHEW DIGESTIN [Concomitant]
     Dosage: 100 MG ORAL TABLET CHEWABLE, RPT
     Route: 048
  11. VITAMIN SOURCE GLUCOSAMINE CHONDROITIN MSM [Concomitant]
     Dosage: ORAL, TABLET, RPT
     Route: 048
  12. FERROUS SULFATE [Concomitant]
     Dosage: FC 325TABS, TAKE 1 TABLET TWICE DAILY, RPT
     Route: 048
  13. EVENING PRIMROSE OIL [Concomitant]
     Dosage: UNK, BID
     Route: 048
  14. KRILL OIL [Concomitant]
     Dosage: RPT
     Route: 048

REACTIONS (7)
  - Renal failure acute [Recovering/Resolving]
  - Back pain [Unknown]
  - Arthralgia [Unknown]
  - Weight decreased [Unknown]
  - Fatigue [Unknown]
  - Irritability [Unknown]
  - Depression [Unknown]
